FAERS Safety Report 7339223-0 (Version None)
Quarter: 2011Q1

REPORT INFORMATION
  Report Type: 
  Country: None (occurrence: None)
  Receive Date: 20110228
  Receipt Date: 20091029
  Transmission Date: 20110831
  Serious: Yes (Hospitalization)
  Sender: FDA-Public Use
  Company Number: 8053521

PATIENT
  Sex: Female
  Weight: 52.4 kg

DRUGS (5)
  1. CERTOLIZUMAB PEGOL [Suspect]
     Indication: CROHN'S DISEASE
     Dosage: (400 MG 1X/MONTH SUBCUTANEOUS) (400 MG 1X/MONTH SUBCUTANEOUS) (SUBCUTANEOUS) (SUBCUTANEOUS)
     Route: 058
     Dates: start: 20090925
  2. CERTOLIZUMAB PEGOL [Suspect]
     Indication: CROHN'S DISEASE
     Dosage: (400 MG 1X/MONTH SUBCUTANEOUS) (400 MG 1X/MONTH SUBCUTANEOUS) (SUBCUTANEOUS) (SUBCUTANEOUS)
     Route: 058
     Dates: start: 20081201, end: 20090327
  3. CERTOLIZUMAB PEGOL [Suspect]
     Indication: CROHN'S DISEASE
     Dosage: (400 MG 1X/MONTH SUBCUTANEOUS) (400 MG 1X/MONTH SUBCUTANEOUS) (SUBCUTANEOUS) (SUBCUTANEOUS)
     Route: 058
     Dates: start: 20090502, end: 20090528
  4. CERTOLIZUMAB PEGOL [Suspect]
     Indication: CROHN'S DISEASE
     Dosage: (400 MG 1X/MONTH SUBCUTANEOUS) (400 MG 1X/MONTH SUBCUTANEOUS) (SUBCUTANEOUS) (SUBCUTANEOUS)
     Route: 058
     Dates: start: 20090615
  5. PREDNISONE [Concomitant]

REACTIONS (1)
  - INFLUENZA [None]
